FAERS Safety Report 11393256 (Version 3)
Quarter: 2015Q4

REPORT INFORMATION
  Report Type: Spontaneous
  Country: US (occurrence: US)
  Receive Date: 20150818
  Receipt Date: 20151112
  Transmission Date: 20160304
  Serious: Yes (Other)
  Sender: FDA-Public Use
  Company Number: US-GLAXOSMITHKLINE-US2015GSK117486

PATIENT
  Sex: Female

DRUGS (1)
  1. ADVAIR DISKUS [Suspect]
     Active Substance: FLUTICASONE PROPIONATE\SALMETEROL XINAFOATE
     Indication: PRODUCT USED FOR UNKNOWN INDICATION
     Dosage: 250 UG, UNK
     Route: 055

REACTIONS (8)
  - Asthma [Unknown]
  - Incorrect dose administered [Unknown]
  - Adverse event [Unknown]
  - Stress [Unknown]
  - Pancreatitis [Unknown]
  - Inability to afford medication [Unknown]
  - Coronary arterial stent insertion [Unknown]
  - Intentional product use issue [Unknown]
